FAERS Safety Report 15632022 (Version 1)
Quarter: 2018Q4

REPORT INFORMATION
  Report Type: Spontaneous
  Country: US (occurrence: US)
  Receive Date: 20181119
  Receipt Date: 20181119
  Transmission Date: 20190205
  Serious: Yes (Hospitalization)
  Sender: FDA-Public Use
  Company Number: US-ALKERMES INC.-ALK-2018-005517

PATIENT
  Age: 26 Year
  Sex: Female
  Weight: 97.52 kg

DRUGS (8)
  1. XANAX [Concomitant]
     Active Substance: ALPRAZOLAM
     Indication: PRODUCT USED FOR UNKNOWN INDICATION
     Dosage: UNK
     Route: 065
     Dates: start: 20181009
  2. REVIA [Concomitant]
     Active Substance: NALTREXONE HYDROCHLORIDE
     Indication: DRUG DEPENDENCE
     Dosage: 25 MG, QD
     Route: 048
     Dates: start: 20181005
  3. VIVITROL [Suspect]
     Active Substance: NALTREXONE
     Indication: DRUG DEPENDENCE
     Dosage: 380 MG, QMO
     Route: 030
     Dates: start: 20170818
  4. LOESTRIN 1/20 21 DAY [Concomitant]
     Active Substance: ETHINYL ESTRADIOL\NORETHINDRONE ACETATE
     Indication: PRODUCT USED FOR UNKNOWN INDICATION
     Dosage: 1 MG, QD
     Route: 048
     Dates: start: 20180917
  5. NEURONTIN [Concomitant]
     Active Substance: GABAPENTIN
     Indication: PRODUCT USED FOR UNKNOWN INDICATION
     Dosage: 300 MG, TID
     Route: 048
     Dates: start: 20180917
  6. REVIA [Concomitant]
     Active Substance: NALTREXONE HYDROCHLORIDE
     Indication: ALCOHOLISM
  7. TRAZODONE [Concomitant]
     Active Substance: TRAZODONE HYDROCHLORIDE
     Indication: PRODUCT USED FOR UNKNOWN INDICATION
     Dosage: 100 MG, QD
     Route: 048
     Dates: start: 20180917
  8. VIVITROL [Suspect]
     Active Substance: NALTREXONE
     Indication: ALCOHOLISM

REACTIONS (17)
  - Presyncope [Unknown]
  - Contusion [Unknown]
  - Nausea [Unknown]
  - Intentional self-injury [Unknown]
  - Headache [Recovering/Resolving]
  - Visual impairment [Unknown]
  - Drug screen positive [Unknown]
  - Suicide attempt [Unknown]
  - Alcoholism [Not Recovered/Not Resolved]
  - Skin laceration [Recovering/Resolving]
  - Depression [Unknown]
  - Blood alcohol increased [Unknown]
  - Loss of consciousness [Unknown]
  - Stress [Unknown]
  - Self-medication [Unknown]
  - Drug dependence [Not Recovered/Not Resolved]
  - Dizziness [Unknown]

NARRATIVE: CASE EVENT DATE: 20181009
